FAERS Safety Report 7911681-X (Version None)
Quarter: 2011Q4

REPORT INFORMATION
  Report Type: 
  Country: None (occurrence: None)
  Receive Date: 20111114
  Receipt Date: 20111110
  Transmission Date: 20120403
  Serious: Yes (Other)
  Sender: FDA-Public Use
  Company Number: US-ROXANE LABORATORIES, INC.-2011-RO-01456RO

PATIENT
  Sex: Male
  Weight: 84 kg

DRUGS (15)
  1. STUDY DRUG [Suspect]
     Indication: KIDNEY TRANSPLANT REJECTION
     Dosage: 10 MG
     Route: 048
     Dates: start: 20091218
  2. NORVASC [Concomitant]
     Indication: HYPERTENSION
     Dosage: 2.5 MG
     Route: 048
     Dates: start: 20081222
  3. PREDNISONE [Suspect]
     Indication: IMMUNOSUPPRESSION
     Dosage: 5 MG
     Route: 048
     Dates: start: 20090104
  4. MYFORTIC [Suspect]
     Dosage: 360 MG
     Route: 048
     Dates: start: 20111007
  5. MYFORTIC [Suspect]
     Dosage: 360 MG
     Route: 048
     Dates: start: 20101007, end: 20101223
  6. CALCIUM CARBONATE [Concomitant]
     Indication: PROPHYLAXIS
     Route: 048
     Dates: start: 20081211
  7. SIMVASTATIN [Concomitant]
     Indication: HYPERCHOLESTEROLAEMIA
     Dosage: 80 MG
     Route: 048
  8. VITAMIN D [Concomitant]
     Indication: PROPHYLAXIS
     Route: 048
     Dates: start: 20081212
  9. LOVAZA [Concomitant]
     Indication: VITAMIN SUPPLEMENTATION
     Dosage: 1 G
     Route: 048
     Dates: start: 20090311
  10. STUDY DRUG [Suspect]
     Dosage: 10 MG
     Route: 048
     Dates: start: 20100622
  11. MYFORTIC [Suspect]
     Dosage: 180 MG
     Route: 048
     Dates: start: 20101224
  12. MULTI-VITAMINS [Concomitant]
     Indication: VITAMIN SUPPLEMENTATION
     Route: 048
  13. ROSUVASTATIN [Concomitant]
     Dates: start: 20110701
  14. BACTRIM [Concomitant]
     Indication: PROPHYLAXIS
     Route: 048
     Dates: start: 20081212
  15. MYFORTIC [Suspect]
     Indication: IMMUNOSUPPRESSION
     Dosage: 720 MG
     Route: 048
     Dates: start: 20090916, end: 20091006

REACTIONS (1)
  - SQUAMOUS CELL CARCINOMA OF SKIN [None]
